FAERS Safety Report 17911127 (Version 1)
Quarter: 2020Q2

REPORT INFORMATION
  Report Type: Spontaneous
  Country: BR (occurrence: BR)
  Receive Date: 20200618
  Receipt Date: 20200618
  Transmission Date: 20200714
  Serious: Yes (Other)
  Sender: FDA-Public Use
  Company Number: BR-IGSA-SR10010471

PATIENT
  Sex: Female

DRUGS (1)
  1. FLEBOGAMMA DIF [Suspect]
     Active Substance: HUMAN IMMUNOGLOBULIN G
     Indication: RHEUMATOID VASCULITIS
     Dosage: 20 G, UNK
     Route: 042
     Dates: start: 20200525

REACTIONS (6)
  - Burning sensation [Recovering/Resolving]
  - Oedema [Recovering/Resolving]
  - Discomfort [Recovering/Resolving]
  - Haematoma [Recovering/Resolving]
  - Phlebitis [Recovering/Resolving]
  - Pain [Recovering/Resolving]

NARRATIVE: CASE EVENT DATE: 20200526
